FAERS Safety Report 7764231-5 (Version None)
Quarter: 2011Q3

REPORT INFORMATION
  Report Type: 
  Country: None (occurrence: None)
  Receive Date: 20110919
  Receipt Date: 20110919
  Transmission Date: 20111222
  Serious: No
  Sender: FDA-Public Use
  Company Number: None

PATIENT
  Sex: Female
  Weight: 80.739 kg

DRUGS (1)
  1. LOVENOX [Suspect]
     Dosage: GENERIC LOVENOX (LENOXAPARIN) 40MG DAILY S.C.
     Route: 058
     Dates: start: 20110101

REACTIONS (7)
  - INJECTION SITE ERYTHEMA [None]
  - RASH PUSTULAR [None]
  - PRODUCT QUALITY ISSUE [None]
  - LACERATION [None]
  - SKIN HAEMORRHAGE [None]
  - PRODUCT SUBSTITUTION ISSUE [None]
  - INJECTION SITE PRURITUS [None]
